FAERS Safety Report 5644808-3 (Version None)
Quarter: 2008Q1

REPORT INFORMATION
  Report Type: 
  Country: None (occurrence: None)
  Receive Date: 20080229
  Receipt Date: 20070815
  Transmission Date: 20080703
  Serious: No
  Sender: FDA-Public Use
  Company Number: A0670658A

PATIENT
  Age: 77 Year
  Sex: Female

DRUGS (8)
  1. VALTREX [Suspect]
     Indication: GENITAL HERPES
     Dosage: 500MG UNKNOWN
     Route: 048
  2. ZETIA [Concomitant]
  3. CRESTOR [Concomitant]
  4. LEVOTHYROXINE SODIUM [Concomitant]
  5. NEXIUM [Concomitant]
  6. ASPIRIN [Concomitant]
  7. CALCIUM [Concomitant]
  8. VITAMINS [Concomitant]

REACTIONS (2)
  - PRURITUS [None]
  - RASH [None]
